FAERS Safety Report 12763924 (Version 1)
Quarter: 2016Q3

REPORT INFORMATION
  Report Type: Report from Study
  Country: US (occurrence: US)
  Receive Date: 20160920
  Receipt Date: 20160920
  Transmission Date: 20161109
  Serious: Yes (Other)
  Sender: FDA-Public Use
  Company Number: US-009507513-1609USA007459

PATIENT
  Age: 78 Year
  Sex: Male

DRUGS (1)
  1. PEMBROLIZUMAB. [Suspect]
     Active Substance: PEMBROLIZUMAB
     Indication: NON-SMALL CELL LUNG CANCER STAGE IV
     Dosage: 2 MG/KG, UNK
     Route: 042
     Dates: start: 201509, end: 201512

REACTIONS (4)
  - Pneumonitis [Unknown]
  - Pneumonitis [Not Recovered/Not Resolved]
  - Cardiac flutter [Unknown]
  - Pneumonitis [Unknown]

NARRATIVE: CASE EVENT DATE: 201512
